FAERS Safety Report 5374831-8 (Version None)
Quarter: 2007Q2

REPORT INFORMATION
  Report Type: 
  Country: None (occurrence: None)
  Receive Date: 20070629
  Receipt Date: 20070627
  Transmission Date: 20071010
  Serious: Yes (Other)
  Sender: FDA-Public Use
  Company Number: A0660779A

PATIENT
  Age: 14 Year
  Sex: Female

DRUGS (4)
  1. VENTOLIN [Suspect]
     Indication: DRUG USE FOR UNKNOWN INDICATION
     Dosage: 1ML SINGLE DOSE
     Route: 055
  2. PULMICORT [Suspect]
     Indication: DRUG USE FOR UNKNOWN INDICATION
     Route: 055
  3. BENYLIN [Suspect]
     Indication: DRUG USE FOR UNKNOWN INDICATION
     Route: 048
  4. METHYLPHENIDATE HCL [Concomitant]

REACTIONS (4)
  - CYANOSIS [None]
  - DRUG INEFFECTIVE [None]
  - MUSCLE CONTRACTIONS INVOLUNTARY [None]
  - SKIN DISCOLOURATION [None]
